FAERS Safety Report 8406242-2 (Version None)
Quarter: 2012Q2

REPORT INFORMATION
  Report Type: 
  Country: None (occurrence: None)
  Receive Date: 20120604
  Receipt Date: 20120524
  Transmission Date: 20120825
  Serious: Yes (Hospitalization)
  Sender: FDA-Public Use
  Company Number: BR-JNJFOC-20120413120

PATIENT
  Sex: Female

DRUGS (1)
  1. RISPERIDONE [Suspect]
     Indication: BIPOLAR DISORDER
     Route: 065

REACTIONS (6)
  - INCREASED APPETITE [None]
  - TREATMENT NONCOMPLIANCE [None]
  - AMENORRHOEA [None]
  - WEIGHT INCREASED [None]
  - MENSTRUATION IRREGULAR [None]
  - MENTAL DISORDER [None]
